FAERS Safety Report 20803189 (Version 1)
Quarter: 2022Q2

REPORT INFORMATION
  Report Type: Spontaneous
  Country: US (occurrence: US)
  Receive Date: 20220509
  Receipt Date: 20220509
  Transmission Date: 20220721
  Serious: No
  Sender: FDA-Public Use
  Company Number: US-ELI_LILLY_AND_COMPANY-US202205003000

PATIENT
  Sex: Female

DRUGS (1)
  1. HUMALOG [Suspect]
     Active Substance: INSULIN LISPRO
     Indication: Type 1 diabetes mellitus
     Dosage: 20 U, TID
     Route: 058
     Dates: start: 2015

REACTIONS (3)
  - Hypoaesthesia [Unknown]
  - Accidental exposure to product [Unknown]
  - Wrong product administered [Unknown]
